FAERS Safety Report 8251472-6 (Version None)
Quarter: 2012Q2

REPORT INFORMATION
  Report Type: 
  Country: None (occurrence: None)
  Receive Date: 20120402
  Receipt Date: 20120323
  Transmission Date: 20120825
  Serious: Yes (Other)
  Sender: FDA-Public Use
  Company Number: US-BAYER-2011-049495

PATIENT
  Age: 27 Year
  Sex: Female
  Weight: 61.224 kg

DRUGS (2)
  1. HYDROCODONE BITARTRATE [Concomitant]
     Indication: MIGRAINE
     Dosage: UNK
     Dates: start: 20050401
  2. YAZ [Suspect]
     Indication: CONTRACEPTION
     Dosage: UNK
     Dates: start: 20080303, end: 20090620

REACTIONS (8)
  - THROMBOPHLEBITIS SUPERFICIAL [None]
  - OEDEMA PERIPHERAL [None]
  - PAIN [None]
  - ANXIETY [None]
  - EMOTIONAL DISTRESS [None]
  - GENERAL PHYSICAL HEALTH DETERIORATION [None]
  - PAIN IN EXTREMITY [None]
  - SKIN DISCOLOURATION [None]
